FAERS Safety Report 8164416-2 (Version None)
Quarter: 2012Q1

REPORT INFORMATION
  Report Type: 
  Country: None (occurrence: None)
  Receive Date: 20120224
  Receipt Date: 20120216
  Transmission Date: 20120608
  Serious: Yes (Other)
  Sender: FDA-Public Use
  Company Number: US-ABBOTT-12P-163-0906459-00

PATIENT
  Sex: Female
  Weight: 93.07 kg

DRUGS (5)
  1. HUMIRA [Suspect]
     Indication: PSORIASIS
     Dates: start: 20100101, end: 20110901
  2. PRILOSEC [Concomitant]
     Indication: GASTROOESOPHAGEAL REFLUX DISEASE
  3. ATENOLOL [Concomitant]
     Indication: HYPERTENSION
  4. TRAZODONE HCL [Concomitant]
     Indication: INSOMNIA
  5. HUMIRA [Suspect]
     Indication: PSORIATIC ARTHROPATHY
     Dates: start: 20111021, end: 20111228

REACTIONS (4)
  - SALIVARY GLAND ENLARGEMENT [None]
  - NECK MASS [None]
  - SCAR [None]
  - IMPAIRED HEALING [None]
